FAERS Safety Report 11434878 (Version 3)
Quarter: 2016Q1

REPORT INFORMATION
  Report Type: Report from Study
  Country: JP (occurrence: JP)
  Receive Date: 20150831
  Receipt Date: 20160318
  Transmission Date: 20160525
  Serious: Yes (Other)
  Sender: FDA-Public Use
  Company Number: JP-EISAI MEDICAL RESEARCH-EC-2015-009921

PATIENT
  Age: 71 Year
  Sex: Female
  Weight: 57 kg

DRUGS (10)
  1. KERATINAMIN [Concomitant]
     Active Substance: UREA
  2. DIOVAN [Concomitant]
     Active Substance: VALSARTAN
  3. AMLODIPINE [Concomitant]
     Active Substance: AMLODIPINE BESYLATE
  4. LENVIMA [Suspect]
     Active Substance: LENVATINIB
     Route: 048
     Dates: start: 20150801
  5. PYDOXAL [Concomitant]
     Active Substance: PYRIDOXAL
  6. LENVIMA [Suspect]
     Active Substance: LENVATINIB
     Indication: PAPILLARY THYROID CANCER
     Route: 048
     Dates: start: 20150615, end: 20150709
  7. LENVIMA [Suspect]
     Active Substance: LENVATINIB
     Route: 048
     Dates: start: 20150710, end: 20150720
  8. UREPEARL [Concomitant]
     Active Substance: UREA
  9. LENVIMA [Suspect]
     Active Substance: LENVATINIB
     Route: 048
     Dates: start: 20150721, end: 20150731
  10. PREDNISOLONE. [Concomitant]
     Active Substance: PREDNISOLONE

REACTIONS (1)
  - Retinal vascular occlusion [Recovering/Resolving]

NARRATIVE: CASE EVENT DATE: 20150707
